FAERS Safety Report 6179061-8 (Version None)
Quarter: 2009Q2

REPORT INFORMATION
  Report Type: 
  Country: None (occurrence: None)
  Receive Date: 20090505
  Receipt Date: 20090424
  Transmission Date: 20091009
  Serious: Yes (Hospitalization)
  Sender: FDA-Public Use
  Company Number: PHHY2008US12730

PATIENT
  Sex: Male

DRUGS (1)
  1. ERL 080A ERL+TAB [Suspect]
     Indication: RENAL TRANSPLANT
     Dosage: 1440 MG / DAY
     Route: 048
     Dates: start: 20071228, end: 20080323

REACTIONS (11)
  - ARTERIOVENOUS FISTULA OPERATION [None]
  - CLOSTRIDIAL INFECTION [None]
  - COMPLICATIONS OF TRANSPLANTED KIDNEY [None]
  - DEHYDRATION [None]
  - DIARRHOEA [None]
  - DRUG INTOLERANCE [None]
  - HYPOMAGNESAEMIA [None]
  - NAUSEA [None]
  - NEPHRECTOMY [None]
  - PULMONARY HYPERTENSION [None]
  - VOMITING [None]
